FAERS Safety Report 9274594 (Version 2)
Quarter: 2013Q2

REPORT INFORMATION
  Report Type: Report from Study
  Country: DE (occurrence: DE)
  Receive Date: 20130507
  Receipt Date: 20130604
  Transmission Date: 20140414
  Serious: Yes (Other)
  Sender: FDA-Public Use
  Company Number: DE-ROCHE-1195370

PATIENT
  Age: 63 Year
  Sex: Female

DRUGS (2)
  1. ZELBORAF [Suspect]
     Indication: MALIGNANT MELANOMA
     Route: 065
     Dates: start: 201203, end: 201301
  2. IPILIMUMAB [Concomitant]

REACTIONS (16)
  - Rash [Recovering/Resolving]
  - Palmar-plantar erythrodysaesthesia syndrome [Recovering/Resolving]
  - Skin disorder [Recovering/Resolving]
  - Blood cholesterol increased [Recovering/Resolving]
  - Abdominal discomfort [Recovering/Resolving]
  - Paraesthesia [Recovering/Resolving]
  - Pain [Recovering/Resolving]
  - Alopecia [Recovering/Resolving]
  - Vertigo [Recovering/Resolving]
  - Visual impairment [Recovering/Resolving]
  - Neoplasm malignant [Not Recovered/Not Resolved]
  - Arthralgia [Recovering/Resolving]
  - Photosensitivity reaction [Unknown]
  - Skin papilloma [Recovering/Resolving]
  - Melanocytic naevus [Unknown]
  - Pleomorphic adenoma [Unknown]
